FAERS Safety Report 7384956-3 (Version None)
Quarter: 2011Q1

REPORT INFORMATION
  Report Type: 
  Country: None (occurrence: None)
  Receive Date: 20110330
  Receipt Date: 20110217
  Transmission Date: 20110831
  Serious: Yes (Hospitalization, Other)
  Sender: FDA-Public Use
  Company Number: US-BAXTER-2008BH004388

PATIENT
  Age: 55 Year
  Sex: Male
  Weight: 79 kg

DRUGS (20)
  1. RENAGEL [Concomitant]
     Indication: PRODUCT USED FOR UNKNOWN INDICATION
     Route: 048
  2. ASCORBIC ACID [Concomitant]
     Indication: PRODUCT USED FOR UNKNOWN INDICATION
     Route: 065
  3. ASPIRIN [Concomitant]
     Indication: PRODUCT USED FOR UNKNOWN INDICATION
     Route: 065
  4. FERRLECIT                               /USA/ [Concomitant]
     Indication: PRODUCT USED FOR UNKNOWN INDICATION
     Route: 065
  5. VISTARIL [Concomitant]
     Indication: PRODUCT USED FOR UNKNOWN INDICATION
     Route: 048
  6. TOPROL-XL [Concomitant]
     Indication: PRODUCT USED FOR UNKNOWN INDICATION
     Route: 048
  7. AMLODIPINE [Concomitant]
     Indication: PRODUCT USED FOR UNKNOWN INDICATION
     Route: 048
  8. ESOMEPRAZOLE [Concomitant]
     Indication: PRODUCT USED FOR UNKNOWN INDICATION
     Route: 048
  9. HEPARIN SODIUM INJECTION [Suspect]
     Route: 010
     Dates: start: 20080102, end: 20080414
  10. RANITIDINE [Concomitant]
     Indication: PRODUCT USED FOR UNKNOWN INDICATION
     Route: 048
  11. MINOXIDIL [Concomitant]
     Indication: PRODUCT USED FOR UNKNOWN INDICATION
     Route: 048
  12. SENSIPAR [Concomitant]
     Indication: PRODUCT USED FOR UNKNOWN INDICATION
     Route: 065
  13. VITAMIN B-12 [Concomitant]
     Indication: PRODUCT USED FOR UNKNOWN INDICATION
     Route: 048
  14. VITAMIN E [Concomitant]
     Indication: PRODUCT USED FOR UNKNOWN INDICATION
     Route: 048
  15. HEPARIN SODIUM INJECTION [Suspect]
     Indication: PRODUCT USED FOR UNKNOWN INDICATION
     Route: 065
     Dates: start: 20080415
  16. EPOGEN [Concomitant]
     Indication: PRODUCT USED FOR UNKNOWN INDICATION
     Route: 042
  17. COZAAR [Concomitant]
     Indication: PRODUCT USED FOR UNKNOWN INDICATION
     Route: 048
  18. HEPARIN SODIUM INJECTION [Suspect]
     Route: 042
     Dates: start: 20080102, end: 20080415
  19. HEPARIN SODIUM INJECTION [Suspect]
     Indication: PROPHYLAXIS
     Route: 010
     Dates: start: 20080101, end: 20080312
  20. VERAPAMIL - SLOW RELEASE [Concomitant]
     Indication: PRODUCT USED FOR UNKNOWN INDICATION
     Route: 048

REACTIONS (33)
  - HEART RATE IRREGULAR [None]
  - INTERVERTEBRAL DISC PROTRUSION [None]
  - ASTHENIA [None]
  - RHINORRHOEA [None]
  - ABDOMINAL DISTENSION [None]
  - CONSTIPATION [None]
  - DIARRHOEA [None]
  - HYPOTENSION [None]
  - PARAESTHESIA [None]
  - MUSCLE SPASMS [None]
  - DECREASED APPETITE [None]
  - PRODUCT QUALITY ISSUE [None]
  - DYSPNOEA [None]
  - CERVICAL SPINE FLATTENING [None]
  - NECK PAIN [None]
  - DIZZINESS [None]
  - COUGH [None]
  - HYPOAESTHESIA [None]
  - OROPHARYNGEAL PAIN [None]
  - VOMITING [None]
  - HYPERHIDROSIS [None]
  - ABDOMINAL DISCOMFORT [None]
  - NASOPHARYNGITIS [None]
  - MUSCULOSKELETAL PAIN [None]
  - MALAISE [None]
  - VERTEBRAL FORAMINAL STENOSIS [None]
  - WHEEZING [None]
  - WEIGHT DECREASED [None]
  - HEADACHE [None]
  - SWELLING [None]
  - RASH [None]
  - INSOMNIA [None]
  - NAUSEA [None]
